FAERS Safety Report 12485749 (Version 1)
Quarter: 2016Q2

REPORT INFORMATION
  Report Type: Spontaneous
  Country: JP (occurrence: JP)
  Receive Date: 20160621
  Receipt Date: 20160621
  Transmission Date: 20160815
  Serious: Yes (Death)
  Sender: FDA-Public Use
  Company Number: PHJP1999JP001259

PATIENT
  Age: 46 Year
  Sex: Male
  Weight: 72 kg

DRUGS (7)
  1. SANDIMMUN SIM+CAP [Suspect]
     Active Substance: CYCLOSPORINE
     Dosage: 125 MG, QD
     Route: 048
     Dates: start: 19970109, end: 19970205
  2. SANDIMMUN SIM+CAP [Suspect]
     Active Substance: CYCLOSPORINE
     Dosage: 25 MG, QD
     Route: 048
     Dates: start: 19970320, end: 19970402
  3. SANDIMMUN INFUSION [Suspect]
     Active Substance: CYCLOSPORINE
     Indication: BONE MARROW TRANSPLANT REJECTION
     Dosage: 220 MG, QD
     Route: 065
     Dates: start: 19960620, end: 19960820
  4. SANDIMMUN SIM+CAP [Suspect]
     Active Substance: CYCLOSPORINE
     Dosage: 100 MG, QD
     Route: 048
     Dates: start: 19970206, end: 19970219
  5. SANDIMMUN SIM+CAP [Suspect]
     Active Substance: CYCLOSPORINE
     Dosage: 50 MG, QD
     Route: 048
     Dates: start: 19970306, end: 19970319
  6. SANDIMMUN SIM+CAP [Suspect]
     Active Substance: CYCLOSPORINE
     Indication: PROPHYLAXIS AGAINST GRAFT VERSUS HOST DISEASE
     Dosage: UNK
     Route: 048
     Dates: start: 19960821, end: 19970108
  7. SANDIMMUN INFUSION [Suspect]
     Active Substance: CYCLOSPORINE
     Indication: PROPHYLAXIS AGAINST GRAFT VERSUS HOST DISEASE

REACTIONS (2)
  - Pulmonary haemorrhage [Fatal]
  - Carpal tunnel syndrome [Recovered/Resolved]

NARRATIVE: CASE EVENT DATE: 199612
